FAERS Safety Report 24385583 (Version 1)
Quarter: 2024Q4

REPORT INFORMATION
  Report Type: Spontaneous
  Country: CN (occurrence: CN)
  Receive Date: 20241001
  Receipt Date: 20241001
  Transmission Date: 20250114
  Serious: Yes (Hospitalization)
  Sender: PAREXEL
  Company Number: CN-SHANGHAI JUNSHI BIOSCIENCES CO., LTD.-CN2024011423

PATIENT

DRUGS (4)
  1. TORIPALIMAB [Suspect]
     Active Substance: TORIPALIMAB
     Indication: Squamous cell carcinoma of the tongue
     Dosage: 240 MG
     Route: 041
     Dates: start: 20240808, end: 20240808
  2. PACLITAXEL [Suspect]
     Active Substance: PACLITAXEL
     Indication: Squamous cell carcinoma of the tongue
     Dosage: 150 MG, QOD
     Route: 041
     Dates: start: 20240806, end: 20240808
  3. ERBITUX [Suspect]
     Active Substance: CETUXIMAB
     Indication: Squamous cell carcinoma of the tongue
     Dosage: 600 MG
     Route: 041
     Dates: start: 20240806, end: 20240806
  4. ERBITUX [Suspect]
     Active Substance: CETUXIMAB
     Dosage: 760 MG
     Route: 041
     Dates: start: 20240815, end: 20240815

REACTIONS (1)
  - Myelosuppression [Recovering/Resolving]

NARRATIVE: CASE EVENT DATE: 20240813
